FAERS Safety Report 4737120-8 (Version None)
Quarter: 2005Q3

REPORT INFORMATION
  Report Type: 
  Country: None (occurrence: None)
  Receive Date: 20050804
  Receipt Date: 20050726
  Transmission Date: 20060218
  Serious: Yes (Hospitalization)
  Sender: FDA-Public Use
  Company Number: 2005-07-1714

PATIENT
  Age: 29 Year
  Sex: Male

DRUGS (5)
  1. REBETOL [Suspect]
     Indication: HEPATITIS C
     Dosage: ORAL
     Route: 048
  2. INTRON A [Suspect]
     Indication: HEPATITIS C
     Dosage: SUBCUTANEOUS
     Route: 058
  3. SUBUTEX [Suspect]
     Dosage: 10 TAB QD INHALATION
     Route: 055
  4. CANNABIS [Suspect]
     Indication: DRUG ABUSER
  5. COCAINE [Suspect]
     Indication: DRUG ABUSER
     Dates: end: 20050501

REACTIONS (7)
  - CEREBROVASCULAR ACCIDENT [None]
  - CLONUS [None]
  - EMBOLISM [None]
  - HYPERTRIGLYCERIDAEMIA [None]
  - PROTEIN C DEFICIENCY [None]
  - REFUSAL OF TREATMENT BY PATIENT [None]
  - VASOSPASM [None]
